FAERS Safety Report 16674962 (Version 4)
Quarter: 2019Q3

REPORT INFORMATION
  Report Type: Spontaneous
  Country: US (occurrence: US)
  Receive Date: 20190806
  Receipt Date: 20190822
  Transmission Date: 20191004
  Serious: No
  Sender: FDA-Public Use
  Company Number: US-SA-2019SA208463

PATIENT
  Age: 76 Year
  Sex: Female

DRUGS (2)
  1. PRALUENT [Suspect]
     Active Substance: ALIROCUMAB
     Indication: LOW DENSITY LIPOPROTEIN INCREASED
  2. PRALUENT [Suspect]
     Active Substance: ALIROCUMAB
     Indication: HYPERLIPIDAEMIA
     Dosage: 75 MG, QOW
     Dates: start: 20190709, end: 20190723

REACTIONS (13)
  - Pain [Unknown]
  - Oral discomfort [Recovered/Resolved]
  - Device use issue [Unknown]
  - Condition aggravated [Unknown]
  - Headache [Unknown]
  - Skin burning sensation [Recovered/Resolved]
  - Incorrect dose administered [Unknown]
  - Injection site erythema [Unknown]
  - Oral pruritus [Recovered/Resolved]
  - Injection site bruising [Unknown]
  - Muscle spasms [Not Recovered/Not Resolved]
  - Diarrhoea [Not Recovered/Not Resolved]
  - Pruritus [Recovered/Resolved]

NARRATIVE: CASE EVENT DATE: 201907
